FAERS Safety Report 6628812-4 (Version None)
Quarter: 2010Q1

REPORT INFORMATION
  Report Type: 
  Country: None (occurrence: None)
  Receive Date: 20100311
  Receipt Date: 20100304
  Transmission Date: 20100710
  Serious: Yes (Hospitalization)
  Sender: FDA-Public Use
  Company Number: US-MERCK-1003USA00770

PATIENT
  Age: 64 Year
  Sex: Female

DRUGS (6)
  1. VYTORIN [Suspect]
     Indication: BLOOD CHOLESTEROL INCREASED
     Route: 048
  2. NIFEDIPINE [Concomitant]
     Route: 065
  3. HYDROCHLOROTHIAZIDE AND TRIAMTERENE [Concomitant]
     Route: 065
  4. ATENOLOL [Concomitant]
     Route: 065
  5. ZOCOR [Suspect]
     Route: 048
  6. LIPITOR [Suspect]
     Route: 065

REACTIONS (3)
  - ABASIA [None]
  - MUSCLE SPASMS [None]
  - PAIN [None]
